FAERS Safety Report 21739656 (Version 1)
Quarter: 2022Q4

REPORT INFORMATION
  Report Type: Other
  Country: JP (occurrence: JP)
  Receive Date: 20221216
  Receipt Date: 20221216
  Transmission Date: 20230112
  Serious: Yes (Other)
  Sender: FDA-Public Use
  Company Number: JP-ROCHE-1655682

PATIENT
  Age: 76 Year
  Sex: Female
  Weight: 53 kg

DRUGS (2)
  1. ALECTINIB [Suspect]
     Active Substance: ALECTINIB
     Indication: Lung adenocarcinoma
     Route: 048
     Dates: start: 20140930, end: 20141103
  2. ALECTINIB [Suspect]
     Active Substance: ALECTINIB
     Indication: Lung adenocarcinoma
     Dosage: 3-4 TIMES/1 WEEK
     Route: 048
     Dates: start: 20141104

REACTIONS (4)
  - Fundoscopy abnormal [Not Recovered/Not Resolved]
  - Vision blurred [Unknown]
  - Dysgeusia [Unknown]
  - Renal impairment [Recovering/Resolving]

NARRATIVE: CASE EVENT DATE: 20141003
